FAERS Safety Report 18465865 (Version 4)
Quarter: 2022Q2

REPORT INFORMATION
  Report Type: Spontaneous
  Country: CA (occurrence: CA)
  Receive Date: 20201104
  Receipt Date: 20220617
  Transmission Date: 20220721
  Serious: Yes (Death, Other)
  Sender: FDA-Public Use
  Company Number: NVSC2020CA295424

PATIENT

DRUGS (103)
  1. ETANERCEPT [Suspect]
     Active Substance: ETANERCEPT
     Indication: Foetal exposure during pregnancy
     Dosage: MATERNAL DOSE UNK
     Route: 064
  2. ADALIMUMAB [Suspect]
     Active Substance: ADALIMUMAB
     Indication: Foetal exposure during pregnancy
     Dosage: MATERNAL DOSE 40 MG, QW
     Route: 065
  3. ADALIMUMAB [Suspect]
     Active Substance: ADALIMUMAB
     Dosage: MATERNAL DOSE 40 MG, QD
     Route: 065
  4. DICLOFENAC SODIUM [Suspect]
     Active Substance: DICLOFENAC SODIUM
     Indication: Foetal exposure during pregnancy
     Dosage: MATERNAL DOSE UNK
     Route: 064
  5. FOLIC ACID [Suspect]
     Active Substance: FOLIC ACID
     Indication: Foetal exposure during pregnancy
     Dosage: MATERNAL DOSE 1 MG
     Route: 064
  6. FOLIC ACID [Suspect]
     Active Substance: FOLIC ACID
     Dosage: MATERNAL DOSE 5 MG
     Route: 064
  7. FOLIC ACID [Suspect]
     Active Substance: FOLIC ACID
     Dosage: MATERNAL DOSE UNK
     Route: 064
  8. FOLIC ACID [Suspect]
     Active Substance: FOLIC ACID
     Dosage: MATERNAL DOSE UNK
     Route: 064
  9. FOLIC ACID [Suspect]
     Active Substance: FOLIC ACID
     Dosage: MATERNAL DOSE 0.5 MG
     Route: 065
  10. FOLIC ACID [Suspect]
     Active Substance: FOLIC ACID
     Dosage: MATERNAL DOSE UNK
     Route: 065
  11. METHOTREXATE SODIUM [Suspect]
     Active Substance: METHOTREXATE SODIUM
     Indication: Foetal exposure during pregnancy
     Dosage: MATERNAL DOSE UNK
     Route: 064
  12. METHOTREXATE SODIUM [Suspect]
     Active Substance: METHOTREXATE SODIUM
     Dosage: MATERNAL DOSE 25 MG
     Route: 064
  13. METHOTREXATE SODIUM [Suspect]
     Active Substance: METHOTREXATE SODIUM
     Dosage: MATERNAL DOSE 25 MG
     Route: 064
  14. METHOTREXATE [Suspect]
     Active Substance: METHOTREXATE
     Indication: Foetal exposure during pregnancy
     Dosage: MATERNAL DOSE 20 MG
     Route: 064
  15. METHOTREXATE [Suspect]
     Active Substance: METHOTREXATE
     Dosage: MATERNAL DOSE 25 MG
     Route: 064
  16. METHOTREXATE [Suspect]
     Active Substance: METHOTREXATE
     Dosage: MATERNAL DOSE 20 MG, QW
     Route: 064
  17. METHOTREXATE [Suspect]
     Active Substance: METHOTREXATE
     Dosage: MATERNAL DOSE 25 MG, QW
     Route: 064
  18. METHOTREXATE [Suspect]
     Active Substance: METHOTREXATE
     Dosage: MATERNAL DOSE 25 MG
     Route: 064
  19. METHOTREXATE [Suspect]
     Active Substance: METHOTREXATE
     Dosage: MATERNAL DOSE 20 MG
     Route: 064
  20. METHOTREXATE [Suspect]
     Active Substance: METHOTREXATE
     Dosage: MATERNAL DOSE 25 MG, QW
     Route: 064
  21. METHOTREXATE [Suspect]
     Active Substance: METHOTREXATE
     Dosage: MATERNAL DOSE UNK
     Route: 064
  22. DICLOFENAC [Suspect]
     Active Substance: DICLOFENAC
     Indication: Foetal exposure during pregnancy
     Dosage: MATERNAL DOSE UNK
     Route: 064
  23. LEFLUNOMIDE [Suspect]
     Active Substance: LEFLUNOMIDE
     Indication: Foetal exposure during pregnancy
     Dosage: MATERNAL DOSE UNK
     Route: 064
  24. ALENDRONATE SODIUM [Suspect]
     Active Substance: ALENDRONATE SODIUM
     Indication: Foetal exposure during pregnancy
     Dosage: MATERNAL DOSE UNK
     Route: 064
  25. ALENDRONATE SODIUM [Suspect]
     Active Substance: ALENDRONATE SODIUM
     Dosage: MATERNAL DOSE UNK (INTRACORPUS)
     Route: 065
  26. ACETAMINOPHEN [Suspect]
     Active Substance: ACETAMINOPHEN
     Indication: Foetal exposure during pregnancy
     Dosage: MATERNAL DOSE UNK
     Route: 064
  27. RITUXIMAB [Suspect]
     Active Substance: RITUXIMAB
     Indication: Foetal exposure during pregnancy
     Dosage: MATERNAL DOSE UNK
     Route: 064
  28. CETIRIZINE HYDROCHLORIDE [Suspect]
     Active Substance: CETIRIZINE HYDROCHLORIDE
     Indication: Foetal exposure during pregnancy
     Dosage: MATERNAL DOSE 10 MG
     Route: 064
  29. CETIRIZINE HYDROCHLORIDE [Suspect]
     Active Substance: CETIRIZINE HYDROCHLORIDE
     Dosage: MATERNAL DOSE UNK
     Route: 064
  30. ACETAMINOPHEN [Suspect]
     Active Substance: ACETAMINOPHEN
     Indication: Foetal exposure during pregnancy
     Dosage: MATERNAL DOSE UNK
     Route: 064
  31. CETIRIZINE HYDROCHLORIDE\PSEUDOEPHEDRINE HYDROCHLORIDE [Suspect]
     Active Substance: CETIRIZINE HYDROCHLORIDE\PSEUDOEPHEDRINE HYDROCHLORIDE
     Indication: Foetal exposure during pregnancy
     Dosage: MATERNAL DOSE UNK
     Route: 064
  32. PSEUDOEPHEDRINE HYDROCHLORIDE [Suspect]
     Active Substance: PSEUDOEPHEDRINE HYDROCHLORIDE
     Indication: Foetal exposure during pregnancy
     Dosage: MATERNAL DOSE UNK
     Route: 064
  33. DESOXIMETASONE [Suspect]
     Active Substance: DESOXIMETASONE
     Indication: Foetal exposure during pregnancy
     Dosage: MATERNAL DOSE UNK
     Route: 064
  34. DESOXIMETASONE [Suspect]
     Active Substance: DESOXIMETASONE
     Dosage: MATERNAL DOSE UNK
     Route: 064
  35. CORTISONE ACETATE [Suspect]
     Active Substance: CORTISONE ACETATE
     Indication: Foetal exposure during pregnancy
     Dosage: MATERNAL DOSE 25 MG
     Route: 064
  36. CORTISONE ACETATE [Suspect]
     Active Substance: CORTISONE ACETATE
     Dosage: MATERNAL DOSE UNK
     Route: 064
  37. CORTISONE ACETATE [Suspect]
     Active Substance: CORTISONE ACETATE
     Dosage: MATERNAL DOSE UNK
     Route: 064
  38. CORTISONE ACETATE [Suspect]
     Active Substance: CORTISONE ACETATE
     Dosage: MATERNAL DOSE 25 MG
     Route: 064
  39. TOCILIZUMAB [Suspect]
     Active Substance: TOCILIZUMAB
     Indication: Foetal exposure during pregnancy
     Dosage: MATERNAL DOSE UNK
     Route: 064
  40. HYDROXYCHLOROQUINE [Suspect]
     Active Substance: HYDROXYCHLOROQUINE
     Indication: Foetal exposure during pregnancy
     Dosage: MATERNAL DOSE 400 MG
     Route: 064
  41. HYDROXYCHLOROQUINE [Suspect]
     Active Substance: HYDROXYCHLOROQUINE
     Dosage: MATERNAL DOSE UNK
     Route: 064
  42. HYDROXYCHLOROQUINE SULFATE [Suspect]
     Active Substance: HYDROXYCHLOROQUINE SULFATE
     Indication: Foetal exposure during pregnancy
     Dosage: MATERNAL DOSE UNK
     Route: 064
  43. PHTHALYLSULFATHIAZOLE [Suspect]
     Active Substance: PHTHALYLSULFATHIAZOLE
     Indication: Foetal exposure during pregnancy
     Dosage: MATERNAL DOSE 400 MG
     Route: 064
  44. PHTHALYLSULFATHIAZOLE [Suspect]
     Active Substance: PHTHALYLSULFATHIAZOLE
     Dosage: MATERNAL DOSE UNK
     Route: 064
  45. PREDNISONE [Suspect]
     Active Substance: PREDNISONE
     Indication: Foetal exposure during pregnancy
     Dosage: MATERNAL DOSE 40 MG
     Route: 064
  46. PREDNISONE [Suspect]
     Active Substance: PREDNISONE
     Dosage: MATERNAL DOSE UNK
     Route: 064
  47. SULFASALAZINE [Suspect]
     Active Substance: SULFASALAZINE
     Indication: Foetal exposure during pregnancy
     Dosage: MATERNAL DOSE 500 MG
     Route: 064
  48. SULFASALAZINE [Suspect]
     Active Substance: SULFASALAZINE
     Dosage: MATERNAL DOSE 1000 MG
     Route: 064
  49. SULFASALAZINE [Suspect]
     Active Substance: SULFASALAZINE
     Dosage: MATERNAL DOSE UNK
     Route: 064
  50. ALENDRONIC ACID [Suspect]
     Active Substance: ALENDRONIC ACID
     Indication: Foetal exposure during pregnancy
     Dosage: MATERNAL DOSE UNK
     Route: 064
  51. ALENDRONIC ACID [Suspect]
     Active Substance: ALENDRONIC ACID
     Dosage: MATERNAL DOSE (INTRACORPUS)
     Route: 064
  52. CIMZIA [Suspect]
     Active Substance: CERTOLIZUMAB PEGOL
     Indication: Foetal exposure during pregnancy
     Dosage: MATERNAL DOSE UNK
     Route: 064
  53. CIMZIA [Suspect]
     Active Substance: CERTOLIZUMAB PEGOL
     Dosage: MATERNAL DOSE 400 MG
     Route: 064
  54. REMICADE [Suspect]
     Active Substance: INFLIXIMAB
     Indication: Foetal exposure during pregnancy
     Dosage: MATERNAL DOSE UNK
     Route: 064
  55. REMICADE [Suspect]
     Active Substance: INFLIXIMAB
     Dosage: MATERNAL DOSE 300 MG
     Route: 064
  56. REMICADE [Suspect]
     Active Substance: INFLIXIMAB
     Dosage: MATERNAL DOSE UNK
     Route: 064
  57. SIMPONI [Suspect]
     Active Substance: GOLIMUMAB
     Indication: Foetal exposure during pregnancy
     Dosage: MATERNAL DOSE UNK
     Route: 064
  58. SIMPONI [Suspect]
     Active Substance: GOLIMUMAB
     Dosage: MATERNAL DOSE UNK
     Route: 064
  59. PREDNISONE [Suspect]
     Active Substance: PREDNISONE
     Indication: Foetal exposure during pregnancy
     Dosage: MATERNAL DOSE UNK
     Route: 064
  60. ARAVA [Suspect]
     Active Substance: LEFLUNOMIDE
     Indication: Foetal exposure during pregnancy
     Dosage: MATERNAL DOSE 20 MG
     Route: 064
  61. ARAVA [Suspect]
     Active Substance: LEFLUNOMIDE
     Dosage: MATERNAL DOSE UNK
     Route: 064
  62. FOSAMAX [Suspect]
     Active Substance: ALENDRONATE SODIUM
     Indication: Foetal exposure during pregnancy
     Dosage: MATERNAL DOSE UNK
     Route: 064
  63. FOSAMAX [Suspect]
     Active Substance: ALENDRONATE SODIUM
     Dosage: MATERNAL DOSE UNK
     Route: 064
  64. ORENCIA [Suspect]
     Active Substance: ABATACEPT
     Indication: Foetal exposure during pregnancy
     Dosage: MATERNAL DOSE UNK
     Route: 064
  65. ORENCIA [Suspect]
     Active Substance: ABATACEPT
     Dosage: MATERNAL DOSE UNK
     Route: 064
  66. PLAQUENIL [Suspect]
     Active Substance: HYDROXYCHLOROQUINE SULFATE
     Indication: Foetal exposure during pregnancy
     Dosage: MATERNAL DOSE 400 MG
     Route: 064
  67. ENBREL [Suspect]
     Active Substance: ETANERCEPT
     Indication: Foetal exposure during pregnancy
     Dosage: MATERNAL DOSE 50 MG
     Route: 064
  68. HUMIRA [Suspect]
     Active Substance: ADALIMUMAB
     Indication: Foetal exposure during pregnancy
     Dosage: MATERNAL DOSE 40 MG
     Route: 064
  69. HUMIRA [Suspect]
     Active Substance: ADALIMUMAB
     Dosage: MATERNAL DOSE 4 MG
     Route: 064
  70. HUMIRA [Suspect]
     Active Substance: ADALIMUMAB
     Dosage: MATERNAL DOSE 400 MG, QW
     Route: 064
  71. SARILUMAB [Suspect]
     Active Substance: SARILUMAB
     Indication: Foetal exposure during pregnancy
     Dosage: MATERNAL DOSE UNK
     Route: 064
  72. STELARA [Suspect]
     Active Substance: USTEKINUMAB
     Indication: Foetal exposure during pregnancy
     Dosage: MATERNAL DOSE UNK
     Route: 064
  73. XELJANZ [Suspect]
     Active Substance: TOFACITINIB CITRATE
     Indication: Foetal exposure during pregnancy
     Dosage: MATERNAL DOSE UNK
     Route: 064
  74. GOLIMUMAB [Suspect]
     Active Substance: GOLIMUMAB
     Indication: Foetal exposure during pregnancy
     Dosage: MATERNAL DOSE UNK
     Route: 064
  75. ACTEMRA [Suspect]
     Active Substance: TOCILIZUMAB
     Indication: Foetal exposure during pregnancy
     Dosage: MATERNAL DOSE UNK
     Route: 064
  76. SULFATHALIDINE [Suspect]
     Active Substance: PHTHALYLSULFATHIAZOLE
     Indication: Foetal exposure during pregnancy
     Dosage: MATERNAL DOSE UNK
     Route: 064
  77. BENADRYL [Suspect]
     Active Substance: DIPHENHYDRAMINE HYDROCHLORIDE
     Indication: Foetal exposure during pregnancy
     Dosage: MATERNAL DOSE UNK
     Route: 064
  78. SOLU-MEDROL [Suspect]
     Active Substance: METHYLPREDNISOLONE SODIUM SUCCINATE
     Indication: Foetal exposure during pregnancy
     Dosage: MATERNAL DOSE UNK
     Route: 064
  79. HYDROXYCHLOROQUINE SULFATE [Suspect]
     Active Substance: HYDROXYCHLOROQUINE SULFATE
     Indication: Foetal exposure during pregnancy
     Dosage: MATERNAL DOSE UNK
     Route: 064
  80. FOLIC ACID [Suspect]
     Active Substance: FOLIC ACID
     Indication: Foetal exposure during pregnancy
     Dosage: MATERNAL DOSE UNK
     Route: 064
  81. OTEZLA [Suspect]
     Active Substance: APREMILAST
     Indication: Foetal exposure during pregnancy
     Dosage: MATERNAL DOSE UNK
     Route: 064
  82. PREDNISONE [Suspect]
     Active Substance: PREDNISONE
     Indication: Foetal exposure during pregnancy
     Dosage: MATERNAL DOSE UNK
     Route: 064
  83. TOPICORT [Suspect]
     Active Substance: DESOXIMETASONE
     Indication: Foetal exposure during pregnancy
     Dosage: MATERNAL DOSE UNK
     Route: 064
  84. INFLIXIMAB [Suspect]
     Active Substance: INFLIXIMAB
     Indication: Foetal exposure during pregnancy
     Dosage: MATERNAL DOSE 400 MG
     Route: 064
  85. INFLIXIMAB [Suspect]
     Active Substance: INFLIXIMAB
     Dosage: MATERNAL DOSE UNK
     Route: 064
  86. DIPHENHYDRAMINE HYDROCHLORIDE [Suspect]
     Active Substance: DIPHENHYDRAMINE HYDROCHLORIDE
     Indication: Foetal exposure during pregnancy
     Dosage: MATERNAL DOSE UNK
     Route: 064
  87. DIPHENHYDRAMINE [Suspect]
     Active Substance: DIPHENHYDRAMINE
     Indication: Foetal exposure during pregnancy
     Dosage: MATERNAL DOSE UNK
     Route: 064
  88. HYDROCORTISONE [Suspect]
     Active Substance: HYDROCORTISONE
     Indication: Foetal exposure during pregnancy
     Dosage: MATERNAL DOSE UNK
     Route: 064
  89. CETIRIZINE HYDROCHLORIDE [Suspect]
     Active Substance: CETIRIZINE HYDROCHLORIDE
     Indication: Foetal exposure during pregnancy
     Dosage: MATERNAL DOSE 10 MG
     Route: 064
  90. CETIRIZINE HYDROCHLORIDE [Suspect]
     Active Substance: CETIRIZINE HYDROCHLORIDE
     Dosage: MATERNAL DOSE UNK
     Route: 064
  91. CETIRIZINE HYDROCHLORIDE [Suspect]
     Active Substance: CETIRIZINE HYDROCHLORIDE
     Indication: Foetal exposure during pregnancy
     Dosage: MATERNAL DOSE UNK
     Route: 064
  92. HYDROCORTISONE ACETATE [Suspect]
     Active Substance: HYDROCORTISONE ACETATE
     Indication: Product used for unknown indication
     Dosage: MATERNAL DOSE UNK
     Route: 065
  93. CETIRIZINE HYDROCHLORIDE\PSEUDOEPHEDRINE HYDROCHLORIDE [Suspect]
     Active Substance: CETIRIZINE HYDROCHLORIDE\PSEUDOEPHEDRINE HYDROCHLORIDE
     Indication: Foetal exposure during pregnancy
     Dosage: MATERNAL DOSE UNK
     Route: 064
  94. CETIRIZINE HYDROCHLORIDE\PSEUDOEPHEDRINE HYDROCHLORIDE [Suspect]
     Active Substance: CETIRIZINE HYDROCHLORIDE\PSEUDOEPHEDRINE HYDROCHLORIDE
     Dosage: MATERNAL DOSE UNK
     Route: 064
  95. METHYLPREDNISOLONE SODIUM SUCCINATE [Suspect]
     Active Substance: METHYLPREDNISOLONE SODIUM SUCCINATE
     Indication: Foetal exposure during pregnancy
     Dosage: MATERNAL DOSE UNK
     Route: 064
  96. LISINOPRIL [Concomitant]
     Active Substance: LISINOPRIL
     Indication: Foetal exposure during pregnancy
     Dosage: MATERNAL DOSE UNK
     Route: 064
  97. SULFASALAZINE [Concomitant]
     Active Substance: SULFASALAZINE
     Indication: Foetal exposure during pregnancy
     Dosage: MATERNAL DOSE 500 MG
     Route: 064
  98. CAFFEINE CITRATE [Concomitant]
     Active Substance: CAFFEINE CITRATE
     Indication: Foetal exposure during pregnancy
     Dosage: MATERNAL DOSE UNK
     Route: 064
  99. TOFACITINIB CITRATE [Concomitant]
     Active Substance: TOFACITINIB CITRATE
     Indication: Foetal exposure during pregnancy
     Dosage: MATERNAL DOSE UNK
     Route: 065
  100. CHOLECALCIFEROL [Concomitant]
     Active Substance: CHOLECALCIFEROL
     Indication: Foetal exposure during pregnancy
     Dosage: MATERNAL DOSE UNK
     Route: 064
  101. DICLOFENAC POTASSIUM [Concomitant]
     Active Substance: DICLOFENAC POTASSIUM
     Indication: Foetal exposure during pregnancy
     Dosage: MATERNAL DOSE UNK
     Route: 064
  102. IBUPROFEN [Concomitant]
     Active Substance: IBUPROFEN
     Indication: Foetal exposure during pregnancy
     Dosage: MATERNAL DOSE UNK
     Route: 064
  103. CODEINE PHOSPHATE [Concomitant]
     Active Substance: CODEINE PHOSPHATE
     Indication: Foetal exposure during pregnancy
     Dosage: MATERNAL DOSE UNK
     Route: 064

REACTIONS (2)
  - Death neonatal [Fatal]
  - Foetal exposure during pregnancy [Unknown]
